FAERS Safety Report 11533147 (Version 3)
Quarter: 2016Q1

REPORT INFORMATION
  Report Type: Spontaneous
  Country: JP (occurrence: JP)
  Receive Date: 20150921
  Receipt Date: 20160122
  Transmission Date: 20160525
  Serious: Yes (Other)
  Sender: FDA-Public Use
  Company Number: JP-009507513-1508JPN011179

PATIENT
  Age: 61 Year
  Sex: Male

DRUGS (11)
  1. CISPLATIN. [Concomitant]
     Active Substance: CISPLATIN
     Indication: SMALL CELL LUNG CANCER
     Dosage: DAILY DOSE: UNKNOWN
     Route: 042
     Dates: start: 20150728, end: 20150728
  2. PALONOSETRON HYDROCHLORIDE. [Concomitant]
     Active Substance: PALONOSETRON HYDROCHLORIDE
     Indication: PROPHYLAXIS OF NAUSEA AND VOMITING
     Dosage: DAILY DOSE: 0.75 (UNIT UNKNOWN), UNK
     Route: 042
     Dates: start: 20150728, end: 20150728
  3. APREPITANT. [Concomitant]
     Active Substance: APREPITANT
     Indication: PROPHYLAXIS OF NAUSEA AND VOMITING
     Dosage: DAILY DOSE: 125 (UNIT UNKNOWN), UNK
     Route: 048
     Dates: start: 20150728, end: 20150728
  4. REFLEX [Suspect]
     Active Substance: MIRTAZAPINE
     Indication: DEPRESSION
     Dosage: DAILY DOSE 15 MG
     Route: 048
     Dates: start: 20150802, end: 20150802
  5. DEXAMETHASONE SODIUM PHOSPHATE. [Concomitant]
     Active Substance: DEXAMETHASONE SODIUM PHOSPHATE
     Indication: PROPHYLAXIS OF NAUSEA AND VOMITING
     Dosage: DAILY DOSE: 9.9 (UNIT UNKNOWN), UNK
     Route: 042
     Dates: start: 20150728, end: 20150728
  6. CHLORPROMAZINE HYDROCHLORIDE. [Concomitant]
     Active Substance: CHLORPROMAZINE HYDROCHLORIDE
     Indication: HICCUPS
     Dosage: DAILY DOSE: 12.5 (UNIT UNKNOWN), UNK
     Route: 048
     Dates: start: 20150730, end: 20150730
  7. REFLEX [Suspect]
     Active Substance: MIRTAZAPINE
     Indication: NAUSEA
  8. REFLEX [Suspect]
     Active Substance: MIRTAZAPINE
     Indication: DECREASED APPETITE
  9. LORAZEPAM. [Concomitant]
     Active Substance: LORAZEPAM
     Indication: NAUSEA
     Dosage: DAILY DOSE: 0.5 (UNIT UNKNOWN), UNK
     Route: 048
     Dates: start: 20150729, end: 20150801
  10. IRINOTECAN HYDROCHLORIDE. [Concomitant]
     Active Substance: IRINOTECAN HYDROCHLORIDE
     Indication: SMALL CELL LUNG CANCER
     Dosage: DAILY DOSE: UNKNOWN
     Route: 042
     Dates: start: 20150728, end: 20150811
  11. APREPITANT. [Concomitant]
     Active Substance: APREPITANT
     Dosage: DAILY DOSE: 160 (UNIT UNKNOWN), UNK
     Route: 048
     Dates: start: 20150729, end: 20150730

REACTIONS (3)
  - Altered state of consciousness [Recovered/Resolved]
  - Blood pressure decreased [Recovered/Resolved]
  - Cold sweat [Recovered/Resolved]

NARRATIVE: CASE EVENT DATE: 20150802
